FAERS Safety Report 6450133-3 (Version None)
Quarter: 2009Q4

REPORT INFORMATION
  Report Type: 
  Country: None (occurrence: None)
  Receive Date: 20091120
  Receipt Date: 20091120
  Transmission Date: 20100525
  Serious: No
  Sender: FDA-Public Use
  Company Number: None

PATIENT
  Age: 78 Year
  Sex: Female
  Weight: 156 kg

DRUGS (1)
  1. LOSARTAN [Suspect]
     Indication: HYPERTENSION
     Dosage: 50 MG EVERY DAY PO
     Route: 048
     Dates: start: 20081208, end: 20090114

REACTIONS (1)
  - HEPATIC ENZYME INCREASED [None]
